FAERS Safety Report 16269075 (Version 1)
Quarter: 2019Q2

REPORT INFORMATION
  Report Type: Report from Study
  Country: BR (occurrence: BR)
  Receive Date: 20190503
  Receipt Date: 20190503
  Transmission Date: 20190711
  Serious: Yes (Death, Hospitalization, Other)
  Sender: FDA-Public Use
  Company Number: BR-ROCHE-2310859

PATIENT
  Age: 38 Year
  Sex: Female

DRUGS (1)
  1. MABTHERA [Suspect]
     Active Substance: RITUXIMAB
     Indication: RHEUMATOID ARTHRITIS
     Route: 041
     Dates: start: 20131030, end: 20190324

REACTIONS (4)
  - Immunodeficiency [Unknown]
  - Sepsis [Fatal]
  - Meningitis [Unknown]
  - Colitis [Unknown]

NARRATIVE: CASE EVENT DATE: 2018
